FAERS Safety Report 16219076 (Version 1)
Quarter: 2019Q2

REPORT INFORMATION
  Report Type: Report from Study
  Country: PL (occurrence: PL)
  Receive Date: 20190419
  Receipt Date: 20190419
  Transmission Date: 20190711
  Serious: Yes (Other)
  Sender: FDA-Public Use
  Company Number: PL-GILEAD-2019-0403242

PATIENT
  Age: 70 Year
  Sex: Male

DRUGS (5)
  1. SOFOSBUVIR [Suspect]
     Active Substance: SOFOSBUVIR
     Indication: HEPATITIS C
     Dosage: 400 MG
     Route: 065
  2. CYCLOSPORIN A [Concomitant]
     Active Substance: CYCLOSPORINE
  3. PREDNISONE. [Concomitant]
     Active Substance: PREDNISONE
  4. MMF [Concomitant]
     Active Substance: MYCOPHENOLATE MOFETIL
  5. RIBAVIRIN. [Suspect]
     Active Substance: RIBAVIRIN
     Indication: HEPATITIS C
     Dosage: UNK
     Route: 065

REACTIONS (3)
  - Complications of transplanted kidney [Unknown]
  - Proteinuria [Unknown]
  - Blood creatinine increased [Unknown]
